FAERS Safety Report 6158590-7 (Version None)
Quarter: 2009Q2

REPORT INFORMATION
  Report Type: 
  Country: None (occurrence: None)
  Receive Date: 20090408
  Receipt Date: 20090121
  Transmission Date: 20091009
  Serious: Yes (Death)
  Sender: FDA-Public Use
  Company Number: BMS-LI-2009-0033-V001

PATIENT
  Age: 53 Year
  Sex: Female

DRUGS (5)
  1. TRAZODONE HYDROCHLORIDE [Suspect]
  2. OXYCODONE HYDROCHLORIDE [Suspect]
  3. DULOXETINE HYDROCHLORIDE [Suspect]
  4. ALPRAZOLAM [Suspect]
  5. SKELETAL MUSCLE RELAXANTS [Suspect]

REACTIONS (3)
  - CARDIAC ARREST [None]
  - COMPLETED SUICIDE [None]
  - RESPIRATORY ARREST [None]
